FAERS Safety Report 7272385-2 (Version None)
Quarter: 2011Q1

REPORT INFORMATION
  Report Type: 
  Country: None (occurrence: None)
  Receive Date: 20110203
  Receipt Date: 20110131
  Transmission Date: 20110831
  Serious: Yes (Other)
  Sender: FDA-Public Use
  Company Number: US-SANOFI-AVENTIS-2011SA006416

PATIENT
  Sex: Female

DRUGS (2)
  1. COUMADIN [Suspect]
     Route: 065
     Dates: start: 20101101
  2. MULTAQ [Suspect]
     Route: 048
     Dates: start: 20101101

REACTIONS (1)
  - HEPATIC ENZYME INCREASED [None]
